FAERS Safety Report 15393867 (Version 2)
Quarter: 2018Q3

REPORT INFORMATION
  Report Type: Spontaneous
  Country: US (occurrence: US)
  Receive Date: 20180917
  Receipt Date: 20180921
  Transmission Date: 20181010
  Serious: Yes (Hospitalization, Other)
  Sender: FDA-Public Use
  Company Number: US-ALLERGAN-1845185US

PATIENT
  Age: 91 Year
  Sex: Female

DRUGS (2)
  1. DALVANCE [Suspect]
     Active Substance: DALBAVANCIN
     Indication: CELLULITIS
     Dosage: ACTUAL: INFUSION TO BRACHIAL ARTERY LASTED 15?25 MINUTES BEFORE BEING STOPPED
     Route: 013
  2. CEFEPIME [Concomitant]
     Active Substance: CEFEPIME HYDROCHLORIDE
     Indication: CELLULITIS
     Route: 042

REACTIONS (11)
  - Hypoaesthesia [Unknown]
  - Muscular weakness [Unknown]
  - Pain in extremity [Not Recovered/Not Resolved]
  - Blister [Not Recovered/Not Resolved]
  - Muscle spasms [Unknown]
  - White blood cell count increased [Unknown]
  - Peripheral swelling [Not Recovered/Not Resolved]
  - Cyanosis [Not Recovered/Not Resolved]
  - Pallor [Unknown]
  - Vascular skin disorder [Unknown]
  - Incorrect route of drug administration [Unknown]
